FAERS Safety Report 7758726-8 (Version None)
Quarter: 2011Q3

REPORT INFORMATION
  Report Type: 
  Country: None (occurrence: None)
  Receive Date: 20110825
  Receipt Date: 20110426
  Transmission Date: 20111222
  Serious: Yes (Other)
  Sender: FDA-Public Use
  Company Number: 327221

PATIENT
  Age: 54 Year
  Sex: Female
  Weight: 112.5 kg

DRUGS (2)
  1. VICTOZA [Suspect]
     Indication: TYPE 2 DIABETES MELLITUS
     Dosage: SUBCUTANEOUS
     Route: 058
     Dates: start: 20110301, end: 20110301
  2. COUMADIN SODIUM (WARFARIN SODIUM) [Concomitant]

REACTIONS (2)
  - NAUSEA [None]
  - DYSPNOEA [None]
